FAERS Safety Report 17832119 (Version 2)
Quarter: 2020Q2

REPORT INFORMATION
  Report Type: Spontaneous
  Country: FR (occurrence: FR)
  Receive Date: 20200527
  Receipt Date: 20200603
  Transmission Date: 20200714
  Serious: Yes (Other)
  Sender: FDA-Public Use
  Company Number: FR-ASTRAZENECA-2020SE66403

PATIENT
  Age: 40 Year
  Sex: Male

DRUGS (5)
  1. GLICAZIDE [Concomitant]
     Active Substance: GLICLAZIDE
     Dosage: 2 GLICAZIDE IN THE MORNING
     Route: 048
  2. FORXIGA [Suspect]
     Active Substance: DAPAGLIFLOZIN
     Indication: TYPE 2 DIABETES MELLITUS
     Dosage: UNSPECIFIED DOSAGE
     Route: 048
     Dates: start: 20200515, end: 20200518
  3. VICTOZA [Concomitant]
     Active Substance: LIRAGLUTIDE
     Dosage: 1.8MG UNKNOWN
     Route: 048
  4. ANTIDIABETIC [Concomitant]
     Active Substance: UNSPECIFIED INGREDIENT
  5. GLIBENESE [Concomitant]
     Dosage: 2 GLIBENESE IN THE EVENING
     Route: 048

REACTIONS (6)
  - Fournier^s gangrene [Not Recovered/Not Resolved]
  - Inflammation [Unknown]
  - Blood glucose increased [Unknown]
  - Pruritus genital [Unknown]
  - Perineal pain [Unknown]
  - Perineal disorder [Unknown]

NARRATIVE: CASE EVENT DATE: 20200518
